FAERS Safety Report 5061819-X (Version None)
Quarter: 2006Q3

REPORT INFORMATION
  Report Type: 
  Country: None (occurrence: None)
  Receive Date: 20060703
  Receipt Date: 20060130
  Transmission Date: 20061208
  Serious: No
  Sender: FDA-Public Use
  Company Number: 2006S1000886

PATIENT
  Age: 43 Year
  Sex: Male
  Weight: 68.0396 kg

DRUGS (15)
  1. CLOZAPINE [Suspect]
     Indication: SCHIZOAFFECTIVE DISORDER
     Dosage: SEE IMAGE
     Route: 048
     Dates: end: 20060207
  2. CLOZAPINE [Suspect]
     Indication: SCHIZOAFFECTIVE DISORDER
     Dosage: SEE IMAGE
     Route: 048
     Dates: end: 20060207
  3. DEPAKOTE [Suspect]
     Dosage: 1500 MG;QD;ORAL
     Route: 048
     Dates: end: 20060130
  4. VITAMINS NOS [Concomitant]
  5. FEXOFENADINE [Concomitant]
  6. HYDROCHLORIDE [Concomitant]
  7. BUSPIRONE HCL [Concomitant]
  8. PHENYTOIN SODIUM [Concomitant]
  9. IBUPROFEN [Concomitant]
  10. RANITIDINE HYDROCHLORIDE [Concomitant]
  11. DOCUSATE SODIUM [Concomitant]
  12. BENZTROPINE MESYLATE [Concomitant]
  13. LAMOTRIGINE [Concomitant]
  14. TOPIRAMATE [Concomitant]
  15. PZCARBAZEPINE [Concomitant]

REACTIONS (1)
  - GRANULOCYTOPENIA [None]
